FAERS Safety Report 6447988-5 (Version None)
Quarter: 2009Q4

REPORT INFORMATION
  Report Type: 
  Country: None (occurrence: None)
  Receive Date: 20091120
  Receipt Date: 20091106
  Transmission Date: 20100525
  Serious: Yes (Death)
  Sender: FDA-Public Use
  Company Number: NL-MEDIMMUNE-MEDI-0009433

PATIENT
  Sex: Male

DRUGS (3)
  1. SYNAGIS [Suspect]
     Route: 030
     Dates: start: 20091002, end: 20091002
  2. PNEUMOCOCCAL VACCINE [Suspect]
     Dates: start: 20091022, end: 20091022
  3. HAEMOPHILUS INFLUENZAE B [Concomitant]

REACTIONS (1)
  - DEATH [None]
